FAERS Safety Report 8457458-0 (Version None)
Quarter: 2012Q2

REPORT INFORMATION
  Report Type: 
  Country: None (occurrence: None)
  Receive Date: 20120621
  Receipt Date: 20120613
  Transmission Date: 20120825
  Serious: Yes (Hospitalization, Disabling, Other)
  Sender: FDA-Public Use
  Company Number: US-MERCK-1109USA01764

PATIENT
  Age: 53 Year
  Sex: Female
  Weight: 78 kg

DRUGS (14)
  1. PAXIL [Concomitant]
     Route: 065
  2. WELLBUTRIN [Concomitant]
     Route: 065
  3. DIOVAN HCT [Concomitant]
     Route: 065
  4. FOSAMAX [Suspect]
     Route: 048
     Dates: start: 20080101, end: 20101001
  5. MIACALCIN [Concomitant]
     Indication: OSTEOPOROSIS
     Route: 065
  6. SYNTHROID [Concomitant]
     Route: 065
  7. DIOVAN HCT [Concomitant]
     Route: 065
  8. FOSAMAX [Suspect]
     Route: 048
     Dates: start: 20050101, end: 20080101
  9. LEVOTHYROXINE SODIUM [Concomitant]
     Indication: HYPOTHYROIDISM
     Route: 065
     Dates: start: 19680101
  10. FOSAMAX [Suspect]
     Indication: OSTEOPOROSIS
     Route: 048
     Dates: start: 20020101, end: 20050101
  11. VITAMINS (UNSPECIFIED) [Concomitant]
     Route: 065
     Dates: start: 20000101
  12. HORMONES (UNSPECIFIED) [Concomitant]
     Route: 065
     Dates: start: 19960101, end: 20110101
  13. LEXAPRO [Concomitant]
     Route: 065
  14. WELLBUTRIN [Concomitant]
     Route: 065

REACTIONS (41)
  - BACK PAIN [None]
  - DIVERTICULUM INTESTINAL [None]
  - MUSCULAR WEAKNESS [None]
  - ROAD TRAFFIC ACCIDENT [None]
  - DRUG INEFFECTIVE [None]
  - CONTUSION [None]
  - LIGAMENT SPRAIN [None]
  - WOUND INFECTION STAPHYLOCOCCAL [None]
  - TIBIA FRACTURE [None]
  - ANKYLOSING SPONDYLITIS [None]
  - DIZZINESS [None]
  - OSTEOPENIA [None]
  - NERVE COMPRESSION [None]
  - PATELLA FRACTURE [None]
  - GASTROOESOPHAGEAL REFLUX DISEASE [None]
  - PAIN [None]
  - DEVICE FAILURE [None]
  - ARTHROPATHY [None]
  - ANXIETY [None]
  - CATARACT [None]
  - FEMUR FRACTURE [None]
  - ACUTE SINUSITIS [None]
  - LOW TURNOVER OSTEOPATHY [None]
  - INSOMNIA [None]
  - FOOT FRACTURE [None]
  - SCRATCH [None]
  - SCOLIOSIS [None]
  - RETINAL HAEMORRHAGE [None]
  - MEMORY IMPAIRMENT [None]
  - ANKLE FRACTURE [None]
  - HYPERCHOLESTEROLAEMIA [None]
  - OSTEOARTHRITIS [None]
  - NECK PAIN [None]
  - SPINAL OSTEOARTHRITIS [None]
  - EMOTIONAL DISTRESS [None]
  - MUSCULOSKELETAL DISORDER [None]
  - DERMATITIS CONTACT [None]
  - FRACTURE DELAYED UNION [None]
  - FALL [None]
  - PAIN IN EXTREMITY [None]
  - MUSCLE STRAIN [None]
